FAERS Safety Report 6548884-5 (Version None)
Quarter: 2010Q1

REPORT INFORMATION
  Report Type: 
  Country: None (occurrence: None)
  Receive Date: 20100125
  Receipt Date: 20100114
  Transmission Date: 20100710
  Serious: Yes (Other)
  Sender: FDA-Public Use
  Company Number: US-BIOGENIDEC-2009BI010743

PATIENT
  Age: 41 Year
  Sex: Female
  Weight: 41 kg

DRUGS (2)
  1. TYSABRI [Suspect]
     Indication: MULTIPLE SCLEROSIS
     Route: 042
     Dates: start: 20041201, end: 20050228
  2. TYSABRI [Suspect]
     Route: 042
     Dates: start: 20060718

REACTIONS (2)
  - FATIGUE [None]
  - MULTIPLE SCLEROSIS [None]
